FAERS Safety Report 4308971-9 (Version None)
Quarter: 2004Q1

REPORT INFORMATION
  Report Type: 
  Country: None (occurrence: None)
  Receive Date: 20040227
  Receipt Date: 20040217
  Transmission Date: 20041129
  Serious: Yes (Death, Other)
  Sender: FDA-Public Use
  Company Number: 2004199843JP

PATIENT
  Age: 75 Year
  Sex: Male

DRUGS (2)
  1. ETOPOSIDE [Suspect]
     Indication: MYCOSIS FUNGOIDES
     Dosage: 200 MG, DAYS 1/WEEKLYX3 WEEKS, IV
     Route: 042
     Dates: start: 19980101, end: 19980101
  2. DELTA-CORTEF [Suspect]
     Indication: MYCOSIS FUNGOIDES
     Dosage: 30 MG, DAYS 1-3/WEEKLYX3 WEEKS, ORAL
     Route: 048
     Dates: start: 19980101

REACTIONS (6)
  - DERMATITIS EXFOLIATIVE [None]
  - DISEASE RECURRENCE [None]
  - DISSEMINATED INTRAVASCULAR COAGULATION [None]
  - GASTROENTERITIS STAPHYLOCOCCAL [None]
  - MYCOSIS FUNGOIDES [None]
  - SEPSIS [None]
